FAERS Safety Report 16073752 (Version 3)
Quarter: 2019Q2

REPORT INFORMATION
  Report Type: Spontaneous
  Country: US (occurrence: US)
  Receive Date: 20190314
  Receipt Date: 20190423
  Transmission Date: 20190711
  Serious: Yes (Hospitalization, Other)
  Sender: FDA-Public Use
  Company Number: US-BIOMARINAP-US-2019-122456

PATIENT
  Age: 2 Month
  Sex: Female

DRUGS (1)
  1. ALDURAZYME [Suspect]
     Active Substance: LARONIDASE
     Indication: MUCOPOLYSACCHARIDOSIS I
     Dosage: UNK
     Route: 041
     Dates: start: 20190220

REACTIONS (5)
  - Poor venous access [Recovered/Resolved]
  - Respiratory tract congestion [Recovered/Resolved]
  - Sinus congestion [Recovered/Resolved]
  - Catheter site infection [Recovering/Resolving]
  - Staphylococcal infection [Recovering/Resolving]

NARRATIVE: CASE EVENT DATE: 20190306
